FAERS Safety Report 16236535 (Version 2)
Quarter: 2025Q3

REPORT INFORMATION
  Report Type: Spontaneous
  Country: EU (occurrence: EU)
  Receive Date: 20190425
  Receipt Date: 20250802
  Transmission Date: 20251021
  Serious: Yes (Other)
  Sender: AUROBINDO
  Company Number: EU-AUROBINDO-AUR-APL-2019-022676

PATIENT
  Age: 47 Year
  Sex: Male

DRUGS (6)
  1. OMEPRAZOLE [Suspect]
     Active Substance: OMEPRAZOLE
     Indication: Product used for unknown indication
     Route: 065
  2. ALPRAZOLAM [Concomitant]
     Active Substance: ALPRAZOLAM
     Indication: Product used for unknown indication
     Route: 065
  3. SERTRALINE [Concomitant]
     Active Substance: SERTRALINE HYDROCHLORIDE
     Indication: Product used for unknown indication
     Route: 065
  4. PREGABALIN [Concomitant]
     Active Substance: PREGABALIN
     Indication: Product used for unknown indication
     Route: 065
  5. ENALAPRIL [Concomitant]
     Active Substance: ENALAPRIL
     Indication: Product used for unknown indication
     Route: 065
  6. CLONAZEPAM [Concomitant]
     Active Substance: CLONAZEPAM
     Indication: Product used for unknown indication
     Route: 065

REACTIONS (1)
  - Parkinson^s disease [Unknown]
